FAERS Safety Report 22061356 (Version 1)
Quarter: 2023Q1

REPORT INFORMATION
  Report Type: Spontaneous
  Country: BR (occurrence: BR)
  Receive Date: 20230304
  Receipt Date: 20230304
  Transmission Date: 20230418
  Serious: Yes (Other)
  Sender: FDA-Public Use
  Company Number: BR-ABBVIE-22K-020-4500173-00

PATIENT
  Age: 33 Year
  Sex: Female
  Weight: 82 kg

DRUGS (1)
  1. HUMIRA [Suspect]
     Active Substance: ADALIMUMAB
     Indication: Hidradenitis
     Route: 058
     Dates: start: 2017

REACTIONS (6)
  - Osteonecrosis [Unknown]
  - Tendon disorder [Unknown]
  - Tenosynovitis [Unknown]
  - Joint effusion [Unknown]
  - Osteoarthritis [Unknown]
  - Oedema [Unknown]

NARRATIVE: CASE EVENT DATE: 20220720
